FAERS Safety Report 20086936 (Version 2)
Quarter: 2021Q4

REPORT INFORMATION
  Report Type: Other
  Country: US (occurrence: None)
  Receive Date: 20211118
  Receipt Date: 20211201
  Transmission Date: 20220303
  Serious: Yes (Other)
  Sender: FDA-Public Use
  Company Number: US-ROCHE-2954414

PATIENT
  Age: 62 Year
  Sex: Female

DRUGS (2)
  1. OCREVUS [Suspect]
     Active Substance: OCRELIZUMAB
     Indication: Primary progressive multiple sclerosis
     Route: 041
     Dates: start: 20180907
  2. OCREVUS [Suspect]
     Active Substance: OCRELIZUMAB
     Dosage: FOR 1DAY, DATE OF TREATMENT: 23/APR/2021, ANTICIPATED NEXT DATE OF TREATMENT: 22/OCT/2021
     Route: 042

REACTIONS (1)
  - Cystitis [Unknown]

NARRATIVE: CASE EVENT DATE: 20211117
